FAERS Safety Report 14631927 (Version 1)
Quarter: 2018Q1

REPORT INFORMATION
  Report Type: Spontaneous
  Country: ID (occurrence: ID)
  Receive Date: 20180313
  Receipt Date: 20180313
  Transmission Date: 20180509
  Serious: Yes (Death, Hospitalization, Other)
  Sender: FDA-Public Use
  Company Number: ID-BAYER-2018-043683

PATIENT
  Age: 73 Year
  Sex: Male

DRUGS (1)
  1. STIVARGA [Suspect]
     Active Substance: REGORAFENIB
     Indication: COLON CANCER
     Dosage: UNK
     Route: 048
     Dates: start: 201610, end: 201612

REACTIONS (7)
  - Hepatomegaly [None]
  - Ammonia increased [None]
  - Urinary retention [None]
  - Abdominal pain upper [None]
  - Respiratory failure [Fatal]
  - Colon cancer [Fatal]
  - Tuberculosis [None]

NARRATIVE: CASE EVENT DATE: 201801
